FAERS Safety Report 6669169-2 (Version None)
Quarter: 2010Q2

REPORT INFORMATION
  Report Type: 
  Country: None (occurrence: None)
  Receive Date: 20100402
  Receipt Date: 20100324
  Transmission Date: 20101027
  Serious: Yes (Other)
  Sender: FDA-Public Use
  Company Number: 233109J10USA

PATIENT
  Age: 33 Year
  Sex: Female

DRUGS (5)
  1. REBIF [Suspect]
     Indication: MULTIPLE SCLEROSIS
     Dosage: 44 MCG, 3 IN 1 WEEKS, SUBCUTANEOUS
     Route: 058
     Dates: start: 20040327, end: 20090201
  2. PAXIL [Concomitant]
  3. CYMBALTA [Concomitant]
  4. PRISTIQ [Concomitant]
  5. RITALIN [Concomitant]

REACTIONS (6)
  - COELIAC DISEASE [None]
  - DIZZINESS [None]
  - FATIGUE [None]
  - IRON DEFICIENCY ANAEMIA [None]
  - PALPITATIONS [None]
  - WHITE BLOOD CELL COUNT DECREASED [None]
